FAERS Safety Report 9409427 (Version 1)
Quarter: 2013Q3

REPORT INFORMATION
  Report Type: Spontaneous
  Country: US (occurrence: US)
  Receive Date: 20130719
  Receipt Date: 20130719
  Transmission Date: 20140515
  Serious: Yes (Disabling)
  Sender: FDA-Public Use
  Company Number: US-GENZYME-CERZ-1003093

PATIENT
  Sex: Female

DRUGS (1)
  1. CEREZYME [Suspect]
     Indication: GAUCHER^S DISEASE
     Dosage: 250 U/KG, Q2W
     Route: 042
     Dates: start: 199108

REACTIONS (2)
  - Dementia with Lewy bodies [Unknown]
  - Parkinson^s disease [Unknown]
